FAERS Safety Report 20924177 (Version 2)
Quarter: 2022Q2

REPORT INFORMATION
  Report Type: Spontaneous
  Country: US (occurrence: US)
  Receive Date: 20220607
  Receipt Date: 20220609
  Transmission Date: 20220721
  Serious: No
  Sender: FDA-Public Use
  Company Number: US-PFIZER INC-202200798063

PATIENT
  Age: 70 Year
  Sex: Female

DRUGS (3)
  1. IBRANCE [Suspect]
     Active Substance: PALBOCICLIB
     Indication: Breast cancer female
     Dosage: 100 MG, CYCLIC (1 TABLET EVERY OTHER DAY)
  2. IBRANCE [Suspect]
     Active Substance: PALBOCICLIB
     Indication: Metastatic bone disease prophylaxis
     Dosage: 100 MG, 1X/DAY (TAKE 1 CAPSULE (100 MG TOTAL) BY MOUTH DAILY)
     Route: 048
  3. IBRANCE [Suspect]
     Active Substance: PALBOCICLIB
     Indication: Hormone receptor positive breast cancer

REACTIONS (1)
  - Off label use [Unknown]
